FAERS Safety Report 7469169-9 (Version None)
Quarter: 2011Q2

REPORT INFORMATION
  Report Type: 
  Country: None (occurrence: None)
  Receive Date: 20110504
  Receipt Date: 20110504
  Transmission Date: 20111010
  Serious: Yes (Other)
  Sender: FDA-Public Use
  Company Number: None

PATIENT
  Sex: Female

DRUGS (1)
  1. LEVOTHYROXINE SODIUM [Suspect]
     Dosage: 25 MCG QD PO
     Route: 048
     Dates: start: 20110301

REACTIONS (4)
  - ALOPECIA [None]
  - CONSTIPATION [None]
  - FATIGUE [None]
  - ASTHENIA [None]
